FAERS Safety Report 11675431 (Version 1)
Quarter: 2015Q4

REPORT INFORMATION
  Report Type: Spontaneous
  Country: US (occurrence: US)
  Receive Date: 20151027
  Receipt Date: 20151027
  Transmission Date: 20160304
  Serious: No
  Sender: FDA-Public Use
  Company Number: US-ELI_LILLY_AND_COMPANY-US201005007203

PATIENT
  Age: 58 Year
  Sex: Female

DRUGS (1)
  1. FORTEO [Suspect]
     Active Substance: TERIPARATIDE
     Indication: OSTEOPOROSIS
     Dosage: 20 UG, UNKNOWN
     Route: 065
     Dates: start: 201005

REACTIONS (17)
  - Feeling hot [Unknown]
  - Somnolence [Unknown]
  - Muscle spasms [Unknown]
  - Ocular hyperaemia [Unknown]
  - Pain in extremity [Not Recovered/Not Resolved]
  - Dizziness [Unknown]
  - Hyperhidrosis [Unknown]
  - Myalgia [Unknown]
  - Fatigue [Unknown]
  - Burning sensation [Unknown]
  - Presyncope [Unknown]
  - Crying [Unknown]
  - Hypoaesthesia [Unknown]
  - Asthenia [Unknown]
  - Malaise [Unknown]
  - Dysuria [Unknown]
  - Feeling abnormal [Unknown]

NARRATIVE: CASE EVENT DATE: 201005
